FAERS Safety Report 18031620 (Version 1)
Quarter: 2020Q3

REPORT INFORMATION
  Report Type: Spontaneous
  Country: US (occurrence: US)
  Receive Date: 20200716
  Receipt Date: 20200716
  Transmission Date: 20201103
  Serious: No
  Sender: FDA-Public Use
  Company Number: None

PATIENT
  Age: 92 Year
  Sex: Female
  Weight: 41.73 kg

DRUGS (2)
  1. CEPHALEXIN 500MG [Suspect]
     Active Substance: CEPHALEXIN
  2. PREDNISONE 20MG [Suspect]
     Active Substance: PREDNISONE
     Indication: ARTHROPOD BITE
     Dosage: ?          QUANTITY:21 ;?
     Route: 048
     Dates: start: 20200707, end: 20200714

REACTIONS (7)
  - Rash pustular [None]
  - Decreased appetite [None]
  - Dehydration [None]
  - Muscle spasms [None]
  - Condition aggravated [None]
  - Faeces hard [None]
  - Eczema [None]
